FAERS Safety Report 4910900-1 (Version None)
Quarter: 2006Q1

REPORT INFORMATION
  Report Type: 
  Country: None (occurrence: None)
  Receive Date: 20060214
  Receipt Date: 20050301
  Transmission Date: 20060701
  Serious: Yes (Other)
  Sender: FDA-Public Use
  Company Number: ES-ROCHE-396885

PATIENT
  Age: 35 Year
  Sex: Female

DRUGS (2)
  1. COPEGUS [Suspect]
     Indication: HEPATITIS C
     Route: 048
     Dates: start: 20031015, end: 20041004
  2. PEGASYS [Suspect]
     Indication: HEPATITIS C
     Dosage: FORM REPORTED AS PRE-FILLED SYRINGE
     Route: 058
     Dates: start: 20031015, end: 20041004

REACTIONS (3)
  - ABORTION SPONTANEOUS [None]
  - DRUG EXPOSURE DURING PREGNANCY [None]
  - PREGNANCY [None]
